FAERS Safety Report 12085744 (Version 2)
Quarter: 2016Q1

REPORT INFORMATION
  Report Type: Spontaneous
  Country: PE (occurrence: PE)
  Receive Date: 20160217
  Receipt Date: 20160222
  Transmission Date: 20160526
  Serious: No
  Sender: FDA-Public Use
  Company Number: PE-009507513-1602PER007146

PATIENT
  Age: 65 Year
  Sex: Female

DRUGS (1)
  1. JANUMET [Suspect]
     Active Substance: METFORMIN HYDROCHLORIDE\SITAGLIPTIN PHOSPHATE
     Indication: DIABETES MELLITUS
     Dosage: 1 DF, QD
     Route: 048
     Dates: end: 20160126

REACTIONS (2)
  - Inappropriate schedule of drug administration [Unknown]
  - Hysterectomy [Unknown]

NARRATIVE: CASE EVENT DATE: 20160125
